FAERS Safety Report 23318957 (Version 1)
Quarter: 2023Q4

REPORT INFORMATION
  Report Type: Spontaneous
  Country: NL (occurrence: NL)
  Receive Date: 20231220
  Receipt Date: 20231220
  Transmission Date: 20240110
  Serious: Yes (Hospitalization)
  Sender: FDA-Public Use
  Company Number: None

PATIENT
  Age: 73 Year

DRUGS (1)
  1. CAPECITABINE [Suspect]
     Active Substance: CAPECITABINE
     Indication: Breast cancer
     Dosage: 2000 MG 2DD?CAPECITABINE TABLET OF 150MG / BRAND NAME NOT SPECIFIED
     Route: 065
     Dates: start: 20230101, end: 20230710

REACTIONS (1)
  - Arteriospasm coronary [Recovered/Resolved]
